FAERS Safety Report 7382774-3 (Version None)
Quarter: 2011Q1

REPORT INFORMATION
  Report Type: 
  Country: None (occurrence: None)
  Receive Date: 20110330
  Receipt Date: 20110323
  Transmission Date: 20110831
  Serious: No
  Sender: FDA-Public Use
  Company Number: US-BIOGENIDEC-2011BI011166

PATIENT
  Age: 56 Year
  Sex: Male

DRUGS (1)
  1. TYSABRI [Suspect]
     Indication: MULTIPLE SCLEROSIS
     Route: 042
     Dates: start: 20110321

REACTIONS (8)
  - FALL [None]
  - CONSTIPATION [None]
  - ARTHRALGIA [None]
  - DEHYDRATION [None]
  - DRY MOUTH [None]
  - HEART RATE INCREASED [None]
  - MYALGIA [None]
  - CHILLS [None]
